FAERS Safety Report 8366484-1 (Version None)
Quarter: 2012Q2

REPORT INFORMATION
  Report Type: 
  Country: None (occurrence: None)
  Receive Date: 20120517
  Receipt Date: 20120508
  Transmission Date: 20120825
  Serious: Yes (Other)
  Sender: FDA-Public Use
  Company Number: BR-ASTRAZENECA-2012SE30088

PATIENT
  Sex: Male

DRUGS (6)
  1. ALPRAZOLAM [Concomitant]
  2. BRILINTA [Suspect]
     Indication: MYOCARDIAL INFARCTION
     Route: 048
     Dates: start: 20120201
  3. ISORDIL [Concomitant]
  4. CILOSTAZOL [Concomitant]
  5. ISOSORBIDE MONONITRATE [Concomitant]
  6. CARVEDILOL [Concomitant]

REACTIONS (1)
  - ANGIOPATHY [None]
